FAERS Safety Report 9697987 (Version 4)
Quarter: 2014Q1

REPORT INFORMATION
  Report Type: Spontaneous
  Country: GB (occurrence: GB)
  Receive Date: 20131120
  Receipt Date: 20140325
  Transmission Date: 20141002
  Serious: Yes (Other)
  Sender: FDA-Public Use
  Company Number: GB-SA-2013SA116951

PATIENT
  Age: 40 Year
  Sex: Male

DRUGS (4)
  1. RIFAMPICIN [Suspect]
     Indication: ENDOCARDITIS STAPHYLOCOCCAL
     Route: 065
     Dates: start: 201002, end: 201109
  2. CUBICIN [Suspect]
     Indication: ENDOCARDITIS STAPHYLOCOCCAL
     Dosage: 500 MG, UNK
     Route: 065
     Dates: start: 201008, end: 201009
  3. CUBICIN [Suspect]
     Indication: ENDOCARDITIS STAPHYLOCOCCAL
     Route: 065
     Dates: start: 201010, end: 201106
  4. VANCOMYCIN [Suspect]
     Indication: ENDOCARDITIS STAPHYLOCOCCAL
     Dosage: 4000 MG, UNK
     Route: 042
     Dates: start: 201002, end: 201010

REACTIONS (5)
  - Embolism [Recovering/Resolving]
  - Cardiac valve vegetation [Recovering/Resolving]
  - Staphylococcal bacteraemia [Recovered/Resolved]
  - No therapeutic response [Unknown]
  - Staphylococcal bacteraemia [Recovered/Resolved]
